FAERS Safety Report 4320343-X (Version None)
Quarter: 2004Q1

REPORT INFORMATION
  Report Type: 
  Country: None (occurrence: None)
  Receive Date: 20040317
  Receipt Date: 20040301
  Transmission Date: 20041129
  Serious: Yes (Other)
  Sender: FDA-Public Use
  Company Number: DSA_24041_2004

PATIENT
  Sex: Female

DRUGS (1)
  1. LORAZEPAM [Suspect]
     Dosage: 1 MG QHS PO
     Route: 048

REACTIONS (3)
  - BLINDNESS UNILATERAL [None]
  - DRUG INEFFECTIVE [None]
  - SELF-MEDICATION [None]
